FAERS Safety Report 14399374 (Version 1)
Quarter: 2018Q1

REPORT INFORMATION
  Report Type: Spontaneous
  Country: US (occurrence: US)
  Receive Date: 20180117
  Receipt Date: 20180117
  Transmission Date: 20180509
  Serious: No
  Sender: FDA-Public Use
  Company Number: US-009507513-1801USA005047

PATIENT
  Age: 3 Year
  Sex: Male

DRUGS (14)
  1. NOXAFIL [Suspect]
     Active Substance: POSACONAZOLE
     Dosage: 12.2 MG/KG/D
     Route: 042
  2. NOXAFIL [Suspect]
     Active Substance: POSACONAZOLE
     Dosage: 11.2 MG/KG/D
     Route: 042
  3. NOXAFIL [Suspect]
     Active Substance: POSACONAZOLE
     Dosage: 11.9 MG/KG/D
     Route: 042
  4. AMPHOTERICIN B. [Concomitant]
     Active Substance: AMPHOTERICIN B
     Indication: FUNGAL INFECTION
     Dosage: UNK
  5. NOXAFIL [Suspect]
     Active Substance: POSACONAZOLE
     Dosage: 9.7 MG/KG/D
     Route: 042
  6. NOXAFIL [Suspect]
     Active Substance: POSACONAZOLE
     Dosage: 11.3 MG/KG/D
     Route: 042
  7. NOXAFIL [Suspect]
     Active Substance: POSACONAZOLE
     Dosage: 11.3 MG/KG/D
     Route: 042
  8. NOXAFIL [Suspect]
     Active Substance: POSACONAZOLE
     Dosage: 10.9 MG/KG/D
     Route: 042
  9. MICAFUNGIN [Concomitant]
     Active Substance: MICAFUNGIN
     Indication: FUNGAL INFECTION
     Dosage: UNK
  10. NOXAFIL [Suspect]
     Active Substance: POSACONAZOLE
     Dosage: 11.9 MG/KG/D
     Route: 042
  11. NOXAFIL [Suspect]
     Active Substance: POSACONAZOLE
     Dosage: 10.7 MG/KG/D
     Route: 042
  12. NOXAFIL [Suspect]
     Active Substance: POSACONAZOLE
     Dosage: 11.7 MG/KG/D
     Route: 042
  13. NOXAFIL [Suspect]
     Active Substance: POSACONAZOLE
     Indication: FUNGAL INFECTION
     Dosage: 9.7 MG/KG, Q12H
     Route: 042
  14. NOXAFIL [Suspect]
     Active Substance: POSACONAZOLE
     Dosage: 11.3 MG/KG BID
     Route: 042

REACTIONS (3)
  - Drug administered to patient of inappropriate age [Unknown]
  - Adverse event [Unknown]
  - Therapy non-responder [Unknown]
